FAERS Safety Report 21144035 (Version 1)
Quarter: 2022Q3

REPORT INFORMATION
  Report Type: Spontaneous
  Country: US (occurrence: None)
  Receive Date: 20220728
  Receipt Date: 20220728
  Transmission Date: 20221027
  Serious: Yes (Hospitalization)
  Sender: FDA-Public Use
  Company Number: None

PATIENT
  Age: 69 Year
  Sex: Male

DRUGS (1)
  1. CAPECITABINE [Suspect]
     Active Substance: CAPECITABINE
     Dosage: FREQUENCY : TWICE A DAY;?
     Route: 048

REACTIONS (7)
  - Paraesthesia [None]
  - Feeling abnormal [None]
  - Infusion related reaction [None]
  - Fall [None]
  - Circulatory collapse [None]
  - Stridor [None]
  - Productive cough [None]

NARRATIVE: CASE EVENT DATE: 20220623
